FAERS Safety Report 10709669 (Version 1)
Quarter: 2015Q1

REPORT INFORMATION
  Report Type: Spontaneous
  Country: US (occurrence: US)
  Receive Date: 20150114
  Receipt Date: 20150114
  Transmission Date: 20150721
  Serious: Yes (Life-Threatening, Hospitalization, Other)
  Sender: FDA-Public Use
  Company Number: US-JNJFOC-20150102458

PATIENT
  Age: 76 Year
  Sex: Male
  Weight: 70.31 kg

DRUGS (9)
  1. XARELTO [Suspect]
     Active Substance: RIVAROXABAN
     Indication: ATRIAL FIBRILLATION
     Dosage: 6 AT 10 MG
     Route: 048
     Dates: start: 20140125, end: 20140212
  2. FISH OIL [Concomitant]
     Active Substance: FISH OIL
     Route: 065
  3. NIACIN. [Concomitant]
     Active Substance: NIACIN
     Route: 065
  4. XARELTO [Suspect]
     Active Substance: RIVAROXABAN
     Indication: CEREBROVASCULAR ACCIDENT PROPHYLAXIS
     Dosage: 6 AT 10 MG
     Route: 048
     Dates: start: 20140125, end: 20140212
  5. VITAMIN B12 [Concomitant]
     Active Substance: CYANOCOBALAMIN
     Route: 065
  6. XARELTO [Suspect]
     Active Substance: RIVAROXABAN
     Indication: ANTICOAGULANT THERAPY
     Dosage: 6 AT 10 MG
     Route: 048
     Dates: start: 20140125, end: 20140212
  7. XARELTO [Suspect]
     Active Substance: RIVAROXABAN
     Indication: ANTICOAGULANT THERAPY
     Dosage: 13 AT 20 MG
     Route: 048
     Dates: start: 20140125, end: 20140212
  8. XARELTO [Suspect]
     Active Substance: RIVAROXABAN
     Indication: CEREBROVASCULAR ACCIDENT PROPHYLAXIS
     Dosage: 13 AT 20 MG
     Route: 048
     Dates: start: 20140125, end: 20140212
  9. XARELTO [Suspect]
     Active Substance: RIVAROXABAN
     Indication: ATRIAL FIBRILLATION
     Dosage: 13 AT 20 MG
     Route: 048
     Dates: start: 20140125, end: 20140212

REACTIONS (5)
  - Blood urine present [Recovered/Resolved]
  - Renal pain [Recovered/Resolved]
  - Renal pain [Recovered/Resolved]
  - Inappropriate schedule of drug administration [Unknown]
  - Overdose [Unknown]

NARRATIVE: CASE EVENT DATE: 2014
